FAERS Safety Report 6829699-7 (Version None)
Quarter: 2010Q3

REPORT INFORMATION
  Report Type: 
  Country: None (occurrence: None)
  Receive Date: 20100709
  Receipt Date: 20070521
  Transmission Date: 20110219
  Serious: No
  Sender: FDA-Public Use
  Company Number: US-PFIZER INC-2007019519

PATIENT
  Sex: Female
  Weight: 44.45 kg

DRUGS (6)
  1. CHANTIX [Suspect]
     Indication: SMOKING CESSATION THERAPY
     Dates: start: 20070201, end: 20070501
  2. AMOXICILLIN [Concomitant]
  3. PREVACID [Concomitant]
  4. CLONAZEPAM [Concomitant]
  5. QVAR 40 [Concomitant]
  6. ALBUTEROL [Concomitant]

REACTIONS (6)
  - ARTHRALGIA [None]
  - COUGH [None]
  - MYALGIA [None]
  - PAIN [None]
  - VIRAL INFECTION [None]
  - WEIGHT INCREASED [None]
